FAERS Safety Report 13044423 (Version 1)
Quarter: 2016Q4

REPORT INFORMATION
  Report Type: Spontaneous
  Country: US (occurrence: US)
  Receive Date: 20161219
  Receipt Date: 20161219
  Transmission Date: 20170207
  Serious: No
  Sender: FDA-Public Use
  Company Number: None

PATIENT
  Age: 51 Year
  Sex: Female
  Weight: 99 kg

DRUGS (20)
  1. LIDOCAINE PATCH 5% 30 PATCHES [Suspect]
     Active Substance: LIDOCAINE
     Indication: CHONDROPATHY
     Dosage: 1 PATCH(ES) TRANSDERMAL DAILY X 12HRS/24HR ?
     Route: 062
     Dates: start: 20161215, end: 20161217
  2. SYNVISC [Concomitant]
     Active Substance: HYALURONATE SODIUM
  3. LIDOCAINE PATCH 5% 30 PATCHES [Suspect]
     Active Substance: LIDOCAINE
     Indication: ARTHRITIS
     Dosage: 1 PATCH(ES) TRANSDERMAL DAILY X 12HRS/24HR ?
     Route: 062
     Dates: start: 20161215, end: 20161217
  4. OLOPATADINE [Concomitant]
     Active Substance: OLOPATADINE
  5. CALCIUM W/VIT  D [Concomitant]
  6. COLLAGEN [Concomitant]
     Active Substance: COLLAGEN
  7. NAPROXEN. [Concomitant]
     Active Substance: NAPROXEN
  8. LIDOCAINE. [Concomitant]
     Active Substance: LIDOCAINE
  9. CANE [Concomitant]
  10. MIRENA [Concomitant]
     Active Substance: LEVONORGESTREL
  11. CRYOCUFF [Concomitant]
  12. LORATADINE. [Concomitant]
     Active Substance: LORATADINE
  13. MULTIVITAMIN/MINERAL [Concomitant]
  14. ORGANIC CHOCOLATE PROTEIN POWDER [Concomitant]
  15. LIDOCAINE PATCH 5% 30 PATCHES [Suspect]
     Active Substance: LIDOCAINE
     Indication: ARTHRALGIA
     Dosage: 1 PATCH(ES) TRANSDERMAL DAILY X 12HRS/24HR ?
     Route: 062
     Dates: start: 20161215, end: 20161217
  16. LIDOCAINE PATCH 5% 30 PATCHES [Suspect]
     Active Substance: LIDOCAINE
     Indication: CONDITION AGGRAVATED
     Dosage: 1 PATCH(ES) TRANSDERMAL DAILY X 12HRS/24HR ?
     Route: 062
     Dates: start: 20161215, end: 20161217
  17. FLUTICASONE PROPIONATE. [Concomitant]
     Active Substance: FLUTICASONE PROPIONATE
  18. ACETAMINOPHEN. [Concomitant]
     Active Substance: ACETAMINOPHEN
  19. TRIAMCINOLONE ACETONIDE/BUPIVACAINE [Concomitant]
  20. METAL KNEE BRACE [Concomitant]

REACTIONS (13)
  - Application site erythema [None]
  - Sleep disorder due to general medical condition, insomnia type [None]
  - Product substitution issue [None]
  - Arthralgia [None]
  - Drug effect decreased [None]
  - Application site rash [None]
  - Condition aggravated [None]
  - Application site warmth [None]
  - Product adhesion issue [None]
  - Device issue [None]
  - Application site irritation [None]
  - Rash macular [None]
  - Application site pruritus [None]

NARRATIVE: CASE EVENT DATE: 20161215
